FAERS Safety Report 23509289 (Version 3)
Quarter: 2024Q1

REPORT INFORMATION
  Report Type: Spontaneous
  Country: US (occurrence: US)
  Receive Date: 20240210
  Receipt Date: 20240313
  Transmission Date: 20240409
  Serious: Yes (Hospitalization, Other)
  Sender: FDA-Public Use
  Company Number: US-SA-SAC20240201001516

PATIENT
  Age: 17 Year
  Sex: Male

DRUGS (2)
  1. DUPIXENT [Suspect]
     Active Substance: DUPILUMAB
     Indication: Asthma
     Dosage: 300 MG, QOW
     Route: 058
     Dates: start: 202208
  2. ACRIVASTINE [Concomitant]
     Active Substance: ACRIVASTINE

REACTIONS (3)
  - Suicide attempt [Recovering/Resolving]
  - Depressed mood [Unknown]
  - Asthma [Unknown]

NARRATIVE: CASE EVENT DATE: 20240101
